FAERS Safety Report 7596954-5 (Version None)
Quarter: 2011Q3

REPORT INFORMATION
  Report Type: 
  Country: None (occurrence: None)
  Receive Date: 20110708
  Receipt Date: 20110629
  Transmission Date: 20111222
  Serious: Yes (Hospitalization)
  Sender: FDA-Public Use
  Company Number: US-JNJFOC-20110700868

PATIENT
  Sex: Male
  Weight: 91.17 kg

DRUGS (4)
  1. COUMADIN [Concomitant]
     Indication: PROPHYLAXIS
     Route: 048
     Dates: start: 20050101
  2. NORVASC [Concomitant]
     Indication: BLOOD PRESSURE
     Route: 048
     Dates: start: 20070101
  3. SIMPONI [Suspect]
     Indication: RHEUMATOID ARTHRITIS
     Route: 058
     Dates: start: 20110101
  4. DEXILANT [Concomitant]
     Route: 048
     Dates: start: 20090101

REACTIONS (9)
  - RESPIRATORY DISTRESS [None]
  - DRUG INEFFECTIVE [None]
  - PAIN [None]
  - BACTERIAL INFECTION [None]
  - PNEUMONITIS [None]
  - CATARACT [None]
  - INFLAMMATION [None]
  - DECREASED IMMUNE RESPONSIVENESS [None]
  - PRODUCT QUALITY ISSUE [None]
